FAERS Safety Report 18544344 (Version 1)
Quarter: 2020Q4

REPORT INFORMATION
  Report Type: Spontaneous
  Country: US (occurrence: US)
  Receive Date: 20201124
  Receipt Date: 20201124
  Transmission Date: 20210114
  Serious: Yes (Life-Threatening, Hospitalization)
  Sender: FDA-Public Use
  Company Number: None

PATIENT
  Age: 85 Year
  Sex: Female
  Weight: 81.45 kg

DRUGS (14)
  1. OMEPRAZOLE. [Concomitant]
     Active Substance: OMEPRAZOLE
     Dates: start: 20180101
  2. MELATONIN [Concomitant]
     Active Substance: MELATONIN
     Dates: start: 20150101
  3. NIFEDIPINE. [Concomitant]
     Active Substance: NIFEDIPINE
     Dates: start: 20150101
  4. IRBESARTAN. [Concomitant]
     Active Substance: IRBESARTAN
     Dates: start: 20150101
  5. PHENOBARBITOL [Concomitant]
     Dates: start: 20100101
  6. DOXAZOSIN [Concomitant]
     Active Substance: DOXAZOSIN MESYLATE
     Dates: start: 20150101
  7. MELOXICAM. [Concomitant]
     Active Substance: MELOXICAM
     Dates: start: 20180101
  8. PHENYTOIN. [Concomitant]
     Active Substance: PHENYTOIN
     Dates: start: 20100101
  9. DULOXETINE. [Concomitant]
     Active Substance: DULOXETINE
     Dates: start: 20200601
  10. METOPROLOL ES [Concomitant]
     Dates: start: 20150101
  11. AMIODARONE [Concomitant]
     Active Substance: AMIODARONE
     Dates: start: 20150101
  12. FUROSEMIDE. [Concomitant]
     Active Substance: FUROSEMIDE
     Dates: start: 20180101
  13. TRAMADOL. [Concomitant]
     Active Substance: TRAMADOL
     Dates: start: 20200601
  14. BAMLANIVIMAB. [Suspect]
     Active Substance: BAMLANIVIMAB
     Indication: SARS-COV-2 TEST POSITIVE
     Dosage: ?          OTHER FREQUENCY:ONE DOSE;?
     Route: 041
     Dates: start: 20201119, end: 20201119

REACTIONS (4)
  - Confusional state [None]
  - Depressed level of consciousness [None]
  - Pain [None]
  - Headache [None]

NARRATIVE: CASE EVENT DATE: 20201119
